FAERS Safety Report 6656521-4 (Version None)
Quarter: 2010Q1

REPORT INFORMATION
  Report Type: 
  Country: None (occurrence: None)
  Receive Date: 20100329
  Receipt Date: 20100317
  Transmission Date: 20100710
  Serious: Yes (Other)
  Sender: FDA-Public Use
  Company Number: JP-PFIZER INC-2010035028

PATIENT
  Age: 74 Year
  Sex: Male

DRUGS (1)
  1. ZOLOFT [Suspect]
     Dosage: 25 MG DAILY
     Route: 048
     Dates: start: 20100203, end: 20100217

REACTIONS (8)
  - DYSPHONIA [None]
  - FEELING COLD [None]
  - LOSS OF CONSCIOUSNESS [None]
  - MOVEMENT DISORDER [None]
  - PALLOR [None]
  - PARKINSON'S DISEASE [None]
  - SOMNOLENCE [None]
  - URINARY INCONTINENCE [None]
